FAERS Safety Report 8780491 (Version 1)
Quarter: 2012Q4

REPORT INFORMATION
  Report Type: Spontaneous
  Country: JP (occurrence: None)
  Receive Date: 20120828
  Receipt Date: 20120828
  Transmission Date: 20130627
  Serious: Yes (Other)
  Sender: FDA-Public Use
  Company Number: 2012P1054349

PATIENT
  Age: 71 Year
  Sex: Female

DRUGS (5)
  1. FENTANYL [Suspect]
     Indication: ANESTHESIA
  2. ROCURONIUM [Concomitant]
  3. BROMIDE [Concomitant]
  4. SEVOFLURANE [Concomitant]
  5. SUGAMMADEX [Concomitant]

REACTIONS (2)
  - Hypoventilation [None]
  - Muscle rigidity [None]
